FAERS Safety Report 15322416 (Version 1)
Quarter: 2018Q3

REPORT INFORMATION
  Report Type: Report from Study
  Country: IN (occurrence: IN)
  Receive Date: 20180827
  Receipt Date: 20180827
  Transmission Date: 20181010
  Serious: Yes (Death)
  Sender: FDA-Public Use
  Company Number: PHHY2018IN078270

PATIENT
  Age: 72 Year
  Sex: Male
  Weight: 80 kg

DRUGS (1)
  1. VYMADA [Suspect]
     Active Substance: SACUBITRIL\VALSARTAN
     Indication: CARDIAC FAILURE CHRONIC
     Dosage: 50 MG ( 24.3 MG SACUBITRIL AND 25.7 MG VALSARTAN), UNK
     Route: 048

REACTIONS (4)
  - Hypertension [Fatal]
  - Cerebrovascular accident [Fatal]
  - Cardiac disorder [Fatal]
  - Diabetes mellitus [Fatal]
